FAERS Safety Report 9355729 (Version 1)
Quarter: 2013Q2

REPORT INFORMATION
  Report Type: Spontaneous
  Country: FR (occurrence: FR)
  Receive Date: 20130619
  Receipt Date: 20130619
  Transmission Date: 20140414
  Serious: Yes (Hospitalization)
  Sender: FDA-Public Use
  Company Number: FR-ASTRAZENECA-2013SE42333

PATIENT
  Age: 15299 Day
  Sex: Male

DRUGS (11)
  1. MOPRAL [Suspect]
     Route: 048
     Dates: end: 20130602
  2. DEPAKINE [Suspect]
     Route: 048
     Dates: end: 20130603
  3. DEPAKINE [Suspect]
     Dosage: DOSE REDUCED
     Route: 048
     Dates: start: 20130603
  4. ZYPREXA [Suspect]
     Route: 048
  5. FLUANXOL [Suspect]
     Route: 048
  6. LYSANXIA [Suspect]
     Route: 048
  7. HAVLANE [Suspect]
     Route: 048
  8. PARKINANE [Suspect]
     Route: 048
  9. DITROPAN [Suspect]
     Route: 048
  10. METEOSPASMYL [Concomitant]
  11. LANSOYL [Concomitant]

REACTIONS (2)
  - Rectal haemorrhage [Not Recovered/Not Resolved]
  - Thrombocytopenia [Not Recovered/Not Resolved]
